FAERS Safety Report 9688294 (Version 1)
Quarter: 2013Q4

REPORT INFORMATION
  Report Type: Spontaneous
  Country: US (occurrence: None)
  Receive Date: 20131112
  Receipt Date: 20131112
  Transmission Date: 20140711
  Serious: Yes (Hospitalization, Other)
  Sender: FDA-Public Use
  Company Number: 2013-US-002638

PATIENT
  Age: 45 Year
  Sex: Female
  Weight: 83.9 kg

DRUGS (1)
  1. XYREM 9SODIUM OXYBATE) ORAL SOLUTION, 500MG/ML [Suspect]
     Indication: NARCOLEPSY
     Route: 048
     Dates: start: 200504, end: 2005

REACTIONS (2)
  - Gastric banding [None]
  - Gastrectomy [None]
